FAERS Safety Report 8618254 (Version 3)
Quarter: 2012Q4

REPORT INFORMATION
  Report Type: 
  Country: US (occurrence: US)
  Receive Date: 20120615
  Receipt Date: 20121005
  Transmission Date: 20130627
  Serious: Yes (Hospitalization, Other)
  Sender: FDA-Public Use
  Company Number: US-PFIZER INC-2012140638

PATIENT
  Age: 68 Year
  Sex: Female
  Weight: 108.84 kg

DRUGS (6)
  1. ZITHROMAX [Suspect]
     Indication: SINUS DISORDER
     Dosage: UNK
     Dates: start: 20070430
  2. ZITHROMAX [Suspect]
     Dosage: 250 mg, 2x/day
     Route: 048
     Dates: start: 201205, end: 201205
  3. ZITHROMAX [Suspect]
     Dosage: 250 mg, 1x/day
     Route: 048
     Dates: start: 201205, end: 201205
  4. LISINOPRIL [Concomitant]
     Indication: DIABETES MELLITUS
     Dosage: 10 mg, 1x/day
  5. ACTOS [Concomitant]
     Indication: DIABETES MELLITUS
     Dosage: 30 mg, 1x/day
  6. HYDROCHLOROTHIAZIDE [Concomitant]
     Indication: DIURETIC THERAPY
     Dosage: 12.5 mg, 1x/day

REACTIONS (9)
  - Malaise [Unknown]
  - Palpitations [Recovering/Resolving]
  - Feeling abnormal [Unknown]
  - Feeling abnormal [Unknown]
  - Cardiac disorder [Unknown]
  - Renal disorder [Unknown]
  - Oxygen saturation decreased [Unknown]
  - Blood potassium increased [Unknown]
  - Blood creatinine increased [Unknown]
